FAERS Safety Report 7078947-X (Version None)
Quarter: 2010Q4

REPORT INFORMATION
  Report Type: 
  Country: None (occurrence: None)
  Receive Date: 20101102
  Receipt Date: 20101022
  Transmission Date: 20110411
  Serious: No
  Sender: FDA-Public Use
  Company Number: US-PFIZER INC-2010134758

PATIENT
  Sex: Female
  Weight: 83.9 kg

DRUGS (6)
  1. NEURONTIN [Suspect]
     Indication: DIABETIC NEUROPATHY
     Dosage: 100 MG, 2X/DAY
     Route: 048
     Dates: start: 20100701
  2. NEURONTIN [Suspect]
     Dosage: 100 MG, 1X/DAY
     Route: 048
     Dates: start: 20100901
  3. GABAPENTIN [Suspect]
     Indication: DIABETIC NEUROPATHY
     Dosage: 100 MG, 2X/DAY
     Route: 048
     Dates: start: 20100401
  4. GABAPENTIN [Suspect]
     Dosage: 100 MG, 2X/DAY
     Route: 048
     Dates: start: 20100801
  5. HUMULIN N [Concomitant]
     Indication: DIABETES MELLITUS
     Dosage: 70 IU, 1X/DAY
     Dates: start: 19880101
  6. HUMALOG [Concomitant]
     Indication: DIABETES MELLITUS
     Dosage: 50 IU, 1X/DAY
     Dates: start: 19880101

REACTIONS (4)
  - DIZZINESS [None]
  - FEELING ABNORMAL [None]
  - HYPOAESTHESIA [None]
  - WEIGHT INCREASED [None]
